FAERS Safety Report 8815961 (Version 5)
Quarter: 2012Q4

REPORT INFORMATION
  Report Type: Report from Study
  Country: AU (occurrence: AU)
  Receive Date: 20120928
  Receipt Date: 20121126
  Transmission Date: 20130627
  Serious: Yes (Life-Threatening, Hospitalization)
  Sender: FDA-Public Use
  Company Number: AU-ROCHE-1032055

PATIENT
  Age: 72 Year
  Sex: Male
  Weight: 62.5 kg

DRUGS (16)
  1. VEMURAFENIB [Suspect]
     Indication: METASTATIC MALIGNANT MELANOMA
     Dosage: Date of last dose prior to SAE: 08/Dec/2011
     Route: 048
     Dates: start: 20111110, end: 20111208
  2. VEMURAFENIB [Suspect]
     Dosage: Date of last dose prior to SAE: 26/Jan/2012
     Route: 048
     Dates: start: 20120105, end: 20120126
  3. VEMURAFENIB [Suspect]
     Route: 048
     Dates: start: 20120213
  4. PRESSIN [Concomitant]
     Route: 065
     Dates: start: 197101
  5. MICARDIS [Concomitant]
     Route: 065
     Dates: start: 197101, end: 20120126
  6. ISOPTIN SR [Concomitant]
     Route: 065
     Dates: start: 197101
  7. OXYCONTIN [Concomitant]
     Route: 065
     Dates: start: 20111110
  8. ENDONE [Concomitant]
     Route: 065
     Dates: start: 20111110
  9. NYSTATIN [Concomitant]
     Route: 065
     Dates: start: 20111207
  10. NYSTATIN [Concomitant]
     Route: 065
     Dates: start: 20111208
  11. OMEPRAZOLE [Concomitant]
     Route: 065
     Dates: start: 20111123
  12. LACTULOSE [Concomitant]
     Route: 065
     Dates: start: 20111110
  13. COLOXYL + SENNA [Concomitant]
     Route: 065
     Dates: start: 20111110
  14. STEMETIL [Concomitant]
     Route: 065
     Dates: start: 201112, end: 201112
  15. MAXOLON [Concomitant]
     Route: 065
     Dates: start: 201112, end: 201112
  16. HEPARIN [Concomitant]
     Dosage: 10000/ unit
     Route: 065
     Dates: start: 20120126, end: 20120130

REACTIONS (2)
  - Sepsis [Recovered/Resolved]
  - Oral candidiasis [Recovered/Resolved]
